FAERS Safety Report 9102860 (Version 2)
Quarter: 2013Q1

REPORT INFORMATION
  Report Type: Report from Study
  Country: GB (occurrence: GB)
  Receive Date: 20130218
  Receipt Date: 20130329
  Transmission Date: 20140127
  Serious: Yes (Other)
  Sender: FDA-Public Use
  Company Number: GB-ASTRAZENECA-2013SE09411

PATIENT
  Age: 17501 Day
  Sex: Female
  Weight: 47 kg

DRUGS (12)
  1. VANDETANIB [Suspect]
     Indication: NON-SMALL CELL LUNG CANCER STAGE IV
     Route: 048
     Dates: start: 20121217, end: 20130109
  2. VANDETANIB [Suspect]
     Indication: NON-SMALL CELL LUNG CANCER STAGE IV
     Route: 048
     Dates: start: 20130114
  3. AZD6244 [Suspect]
     Indication: NON-SMALL CELL LUNG CANCER STAGE IV
     Route: 048
  4. AZD6244 [Suspect]
     Indication: NON-SMALL CELL LUNG CANCER STAGE IV
     Dosage: REDUCED DOSE
     Route: 048
     Dates: start: 20130114
  5. GABAPENTIN [Concomitant]
     Dates: start: 20121109
  6. FENTANYL [Concomitant]
     Dates: start: 20121109
  7. MORPHINE [Concomitant]
     Dates: start: 20121109
  8. IBUPROFEN [Concomitant]
     Dates: start: 20121109
  9. PARACETAMOL [Concomitant]
     Dates: start: 20121109
  10. LOPERAMIDE [Concomitant]
     Dates: start: 20121220
  11. HYDROCORTISONE [Concomitant]
     Dates: start: 20130109, end: 20130116
  12. HYDROCORTISONE [Concomitant]

REACTIONS (1)
  - Detachment of retinal pigment epithelium [Unknown]
